FAERS Safety Report 7951817-8 (Version None)
Quarter: 2011Q4

REPORT INFORMATION
  Report Type: 
  Country: None (occurrence: None)
  Receive Date: 20111201
  Receipt Date: 20111125
  Transmission Date: 20120403
  Serious: Yes (Hospitalization)
  Sender: FDA-Public Use
  Company Number: ES-PFIZER INC-2011288129

PATIENT
  Age: 13 Year
  Sex: Male

DRUGS (1)
  1. SOMATROPIN [Suspect]
     Dosage: 1.4 MG, 1X/DAY
     Dates: start: 20090506

REACTIONS (1)
  - FRACTURE [None]
